FAERS Safety Report 5797103-6 (Version None)
Quarter: 2008Q3

REPORT INFORMATION
  Report Type: 
  Country: None (occurrence: None)
  Receive Date: 20080701
  Receipt Date: 20080620
  Transmission Date: 20090109
  Serious: Yes (Hospitalization)
  Sender: FDA-Public Use
  Company Number: CZ-ASTRAZENECA-2008AC01649

PATIENT
  Age: 52 Year
  Sex: Male

DRUGS (4)
  1. ATENOLOL [Suspect]
     Indication: HYPERTENSION
  2. ATENOLOL [Suspect]
  3. PERINDOPRIL ERBUMINE [Concomitant]
     Indication: HYPERTENSION
  4. INDAPAMID [Concomitant]
     Indication: HYPERTENSION

REACTIONS (1)
  - GLOBAL AMNESIA [None]
